FAERS Safety Report 7068061-1 (Version None)
Quarter: 2010Q4

REPORT INFORMATION
  Report Type: 
  Country: None (occurrence: None)
  Receive Date: 20101027
  Receipt Date: 20101027
  Transmission Date: 20110411
  Serious: Yes (Life-Threatening, Hospitalization, Other)
  Sender: FDA-Public Use
  Company Number: None

PATIENT
  Age: 40 Year
  Sex: Male
  Weight: 149.687 kg

DRUGS (2)
  1. OXYCONTIN [Suspect]
     Indication: COMPLEX REGIONAL PAIN SYNDROME
     Dosage: 120 MG BID PO
     Route: 048
     Dates: start: 19971218, end: 20101018
  2. OXYCONTIN [Suspect]
     Indication: OSTEOGENESIS IMPERFECTA

REACTIONS (10)
  - ABDOMINAL DISTENSION [None]
  - DIARRHOEA [None]
  - DRUG INEFFECTIVE [None]
  - HEADACHE [None]
  - PRODUCT FORMULATION ISSUE [None]
  - RASH [None]
  - SUICIDAL IDEATION [None]
  - URTICARIA [None]
  - VOMITING [None]
  - WITHDRAWAL SYNDROME [None]
